FAERS Safety Report 13080282 (Version 1)
Quarter: 2017Q1

REPORT INFORMATION
  Report Type: Spontaneous
  Country: US (occurrence: US)
  Receive Date: 20170103
  Receipt Date: 20170103
  Transmission Date: 20170428
  Serious: Yes (Hospitalization)
  Sender: FDA-Public Use
  Company Number: US-NOVOPROD-524574

PATIENT
  Age: 75 Year
  Sex: Female
  Weight: 98.87 kg

DRUGS (6)
  1. LEVEMIR [Suspect]
     Active Substance: INSULIN DETEMIR
     Dosage: WOULD TAKE ^AS OFTEN AS SHE COULD^ AND HAD CUT BACK ON HER DOSES/WAS TAKING THEM PART TIME
     Route: 058
     Dates: start: 2016, end: 201610
  2. VICTOZA [Suspect]
     Active Substance: LIRAGLUTIDE
     Dosage: WOULD TAKE ^AS OFTEN AS SHE COULD^ AND HAD CUT BACK ON HER DOSES/WAS TAKING THEM PART TIME
     Route: 058
     Dates: start: 2016, end: 2016
  3. LEVEMIR [Suspect]
     Active Substance: INSULIN DETEMIR
     Indication: TYPE 2 DIABETES MELLITUS
     Dosage: 90 U, QD AT BEDTIME
     Route: 058
  4. NOVOLOG [Suspect]
     Active Substance: INSULIN ASPART
     Indication: TYPE 2 DIABETES MELLITUS
     Dosage: 34 U, TID BEFORE MEALS
  5. NOVOLOG [Suspect]
     Active Substance: INSULIN ASPART
     Dosage: WOULD TAKE ^AS OFTEN AS SHE COULD^ AND HAD CUT BACK ON HER DOSES/WAS TAKING THEM PART TIME
     Route: 058
     Dates: start: 2016, end: 201610
  6. VICTOZA [Suspect]
     Active Substance: LIRAGLUTIDE
     Indication: TYPE 2 DIABETES MELLITUS
     Dosage: 1.8 MG, QD
     Route: 058
     Dates: end: 2016

REACTIONS (7)
  - Blood glucose increased [Recovered/Resolved]
  - Drug dose omission [Recovered/Resolved]
  - Sepsis [Recovered/Resolved]
  - Hyperglycaemic unconsciousness [Recovered/Resolved]
  - Kidney infection [Recovered/Resolved]
  - Thinking abnormal [Recovered/Resolved]
  - Dehydration [Recovered/Resolved]

NARRATIVE: CASE EVENT DATE: 2016
